FAERS Safety Report 10432820 (Version 1)
Quarter: 2014Q3

REPORT INFORMATION
  Report Type: Spontaneous
  Country: GB (occurrence: GB)
  Receive Date: 20140905
  Receipt Date: 20140905
  Transmission Date: 20150326
  Serious: Yes (Other)
  Sender: FDA-Public Use
  Company Number: PHHY2014GB106724

PATIENT
  Age: 10 Year
  Sex: Male

DRUGS (11)
  1. BACLOFEN INTRATHECAL [Suspect]
     Active Substance: BACLOFEN
     Dosage: 700 UG, DAY
  2. MORPHINE [Suspect]
     Active Substance: MORPHINE
  3. TETRABENAZINE [Suspect]
     Active Substance: TETRABENAZINE
  4. CHLORAL HYDRATE [Suspect]
     Active Substance: CHLORAL HYDRATE
  5. BOTULINUM TOXIN [Concomitant]
     Active Substance: BOTULINUM TOXIN TYPE A
     Indication: MUSCLE SPASTICITY
     Route: 030
  6. BACLOFEN INTRATHECAL [Suspect]
     Active Substance: BACLOFEN
     Indication: MUSCLE SPASTICITY
     Dosage: 50 UG, PER DAY
     Route: 037
  7. BACLOFEN. [Suspect]
     Active Substance: BACLOFEN
     Indication: MUSCLE SPASTICITY
     Route: 048
  8. DIAZEPAM. [Suspect]
     Active Substance: DIAZEPAM
  9. LEVODOPA [Suspect]
     Active Substance: LEVODOPA
  10. TRIHEXYPHENIDYL [Suspect]
     Active Substance: TRIHEXYPHENIDYL
  11. CLONIDINE. [Concomitant]
     Active Substance: CLONIDINE

REACTIONS (5)
  - Pseudomonas infection [Unknown]
  - Encephalopathy [Unknown]
  - Meningitis [Unknown]
  - No therapeutic response [Unknown]
  - Device related infection [Unknown]
